FAERS Safety Report 8029025-4 (Version None)
Quarter: 2012Q1

REPORT INFORMATION
  Report Type: 
  Country: None (occurrence: None)
  Receive Date: 20120106
  Receipt Date: 20120105
  Transmission Date: 20120608
  Serious: Yes (Hospitalization)
  Sender: FDA-Public Use
  Company Number: US-JNJFOC-20111111188

PATIENT
  Sex: Female
  Weight: 90.72 kg

DRUGS (4)
  1. SIMPONI [Suspect]
     Route: 058
     Dates: start: 20111101, end: 20111201
  2. TYLENOL W/ CODEINE NO. 4 [Concomitant]
     Indication: PAIN
     Dosage: UNSPECIFIED DOSAGE 2-3 TIMES PER DAY
     Route: 048
     Dates: start: 20010101
  3. SIMPONI [Suspect]
     Indication: ANKYLOSING SPONDYLITIS
     Route: 058
     Dates: start: 20110901, end: 20110901
  4. KLONOPIN [Concomitant]
     Indication: ARRHYTHMIA
     Route: 048
     Dates: start: 19970101

REACTIONS (4)
  - DEVICE MALFUNCTION [None]
  - BRONCHITIS [None]
  - SPINAL FUSION SURGERY [None]
  - DRUG DOSE OMISSION [None]
